FAERS Safety Report 9779854 (Version 1)
Quarter: 2013Q4

REPORT INFORMATION
  Report Type: Report from Study
  Country: US (occurrence: US)
  Receive Date: 20131223
  Receipt Date: 20131223
  Transmission Date: 20140711
  Serious: Yes (Hospitalization, Other)
  Sender: FDA-Public Use
  Company Number: US-BRISTOL-MYERS SQUIBB COMPANY-19919653

PATIENT
  Age: 46 Year
  Sex: Female
  Weight: 123 kg

DRUGS (5)
  1. IPILIMUMAB [Suspect]
     Indication: MALIGNANT MELANOMA
     Dosage: 4 DOSE
     Route: 042
  2. ASCORBIC ACID [Concomitant]
     Route: 048
  3. FERROUS SULFATE [Concomitant]
     Route: 048
  4. HYDRALAZINE [Concomitant]
     Route: 048
  5. METOPROLOL [Concomitant]
     Dosage: 1-1/2 PILLS
     Route: 048

REACTIONS (3)
  - Sepsis [Recovering/Resolving]
  - Skin infection [Recovering/Resolving]
  - Lung infection [Recovering/Resolving]
